FAERS Safety Report 21619145 (Version 1)
Quarter: 2022Q4

REPORT INFORMATION
  Report Type: Spontaneous
  Country: JP (occurrence: JP)
  Receive Date: 20221120
  Receipt Date: 20221120
  Transmission Date: 20230113
  Serious: Yes (Hospitalization, Other)
  Sender: FDA-Public Use
  Company Number: JP-002147023-NVSJ2022JP101020

PATIENT
  Age: 47 Year
  Sex: Female

DRUGS (1)
  1. TASIGNA [Suspect]
     Active Substance: NILOTINIB
     Indication: Chronic myeloid leukaemia
     Dosage: 600 MG
     Route: 048

REACTIONS (7)
  - Carotid artery occlusion [Not Recovered/Not Resolved]
  - Cerebral infarction [Unknown]
  - Altered state of consciousness [Unknown]
  - Hemiplegia [Unknown]
  - Intracardiac thrombus [Unknown]
  - Deep vein thrombosis [Unknown]
  - Cerebral disorder [Unknown]
